FAERS Safety Report 7825324-7 (Version None)
Quarter: 2011Q4

REPORT INFORMATION
  Report Type: 
  Country: None (occurrence: None)
  Receive Date: 20111019
  Receipt Date: 20111007
  Transmission Date: 20120403
  Serious: Yes (Other)
  Sender: FDA-Public Use
  Company Number: FI-GLAXOSMITHKLINE-B0756294A

PATIENT
  Sex: Female

DRUGS (4)
  1. ISOTRETINOIN [Concomitant]
     Route: 048
  2. ALVESCO [Suspect]
     Indication: ASTHMA
     Dosage: 160MCG TWICE PER DAY
     Route: 055
     Dates: start: 20110401
  3. FLUTICASONE FUROATE [Suspect]
     Indication: RHINITIS ALLERGIC
     Route: 045
     Dates: start: 20110401
  4. MONTELUKAST SODIUM [Concomitant]
     Dosage: 10MG PER DAY
     Route: 048

REACTIONS (3)
  - ASTHMA [None]
  - FUNGAL OESOPHAGITIS [None]
  - DYSPEPSIA [None]
